FAERS Safety Report 17008068 (Version 2)
Quarter: 2019Q4

REPORT INFORMATION
  Report Type: Spontaneous
  Country: AT (occurrence: AT)
  Receive Date: 20191108
  Receipt Date: 20191119
  Transmission Date: 20200122
  Serious: Yes (Hospitalization, Other)
  Sender: FDA-Public Use
  Company Number: AT-ALKEM LABORATORIES LIMITED-AT-ALKEM-2019-09296

PATIENT
  Age: 2 Year
  Sex: Male

DRUGS (1)
  1. LIDOCAINE. [Suspect]
     Active Substance: LIDOCAINE
     Indication: APHTHOUS ULCER
     Dosage: 25 MILLILITER OF 2% VISCOUS LIDOCAINE
     Route: 048

REACTIONS (6)
  - Status epilepticus [Recovered/Resolved]
  - Cardiac arrest [Recovered/Resolved]
  - Posterior reversible encephalopathy syndrome [Recovered/Resolved]
  - Accidental exposure to product by child [Unknown]
  - Accidental overdose [Unknown]
  - Toxicity to various agents [Unknown]
